FAERS Safety Report 10870910 (Version 2)
Quarter: 2015Q2

REPORT INFORMATION
  Report Type: Spontaneous
  Country: DE (occurrence: DE)
  Receive Date: 20150226
  Receipt Date: 20150409
  Transmission Date: 20150821
  Serious: Yes (Hospitalization, Other)
  Sender: FDA-Public Use
  Company Number: PHHY2015DE011732

PATIENT
  Sex: Female
  Weight: 50 kg

DRUGS (4)
  1. BISOPROLOL [Concomitant]
     Active Substance: BISOPROLOL
     Indication: HYPERTENSION
     Dosage: HALF TABLET, QD
     Route: 065
  2. CERTICAN [Suspect]
     Active Substance: EVEROLIMUS
     Indication: LIVER TRANSPLANT
     Dosage: 1 MG,(0.5 MG -0.5 MG)
     Route: 065
     Dates: start: 201404, end: 201409
  3. PROGRAF [Concomitant]
     Active Substance: TACROLIMUS\TACROLIMUS ANHYDROUS
     Indication: LIVER TRANSPLANT
     Dosage: 1 MG, QD
     Route: 065
     Dates: end: 201409
  4. CERTICAN [Suspect]
     Active Substance: EVEROLIMUS
     Indication: IMMUNOSUPPRESSION
     Dosage: 1.5 MG, UNK (1 MG ? 0 ? 0.5 MG)
     Route: 065

REACTIONS (8)
  - Cholelithiasis [Unknown]
  - Bacterial infection [Recovering/Resolving]
  - Cystitis [Recovering/Resolving]
  - Renal impairment [Not Recovered/Not Resolved]
  - Bile duct stenosis [Recovering/Resolving]
  - Cholecystitis infective [Unknown]
  - Pseudomonas infection [Unknown]
  - Pyrexia [Recovering/Resolving]

NARRATIVE: CASE EVENT DATE: 201408
